FAERS Safety Report 18655408 (Version 2)
Quarter: 2022Q3

REPORT INFORMATION
  Report Type: Spontaneous
  Country: PT (occurrence: PT)
  Receive Date: 20201223
  Receipt Date: 20220713
  Transmission Date: 20221026
  Serious: Yes (Other)
  Sender: FDA-Public Use
  Company Number: PT-GSKCCFEMEA-CASE-01109213_AE-38331

PATIENT

DRUGS (1)
  1. DUTASTERIDE\TAMSULOSIN [Suspect]
     Active Substance: DUTASTERIDE\TAMSULOSIN
     Indication: Product used for unknown indication
     Dosage: UNK

REACTIONS (12)
  - Diabetes mellitus [Unknown]
  - Ear pruritus [Unknown]
  - Eye allergy [Unknown]
  - Tongue ulceration [Unknown]
  - Food allergy [Unknown]
  - Abdominal discomfort [Unknown]
  - Pain [Unknown]
  - Hypersensitivity [Unknown]
  - Food allergy [Unknown]
  - Flatulence [Unknown]
  - Oropharyngeal pain [Unknown]
  - Prostatomegaly [Unknown]
